FAERS Safety Report 7105844-3 (Version None)
Quarter: 2010Q4

REPORT INFORMATION
  Report Type: 
  Country: None (occurrence: None)
  Receive Date: 20101116
  Receipt Date: 20101108
  Transmission Date: 20110411
  Serious: Yes (Hospitalization, Congenital Anomaly)
  Sender: FDA-Public Use
  Company Number: A0752258A

PATIENT
  Sex: Female

DRUGS (3)
  1. PAXIL [Suspect]
     Indication: DEPRESSION
     Dates: start: 20000401, end: 20001001
  2. ANTIBIOTICS [Concomitant]
  3. PRENATAL VITAMINS [Concomitant]

REACTIONS (11)
  - ASTHMA [None]
  - BRONCHOPULMONARY DYSPLASIA [None]
  - CARDIAC MURMUR [None]
  - CONVULSION [None]
  - DRUG EXPOSURE DURING PREGNANCY [None]
  - LUNG DISORDER [None]
  - PERSISTENT FOETAL CIRCULATION [None]
  - PNEUMONIA [None]
  - PREMATURE BABY [None]
  - RESPIRATORY DISTRESS [None]
  - RETINOPATHY OF PREMATURITY [None]
